FAERS Safety Report 22010442 (Version 1)
Quarter: 2023Q1

REPORT INFORMATION
  Report Type: Spontaneous
  Country: TR (occurrence: TR)
  Receive Date: 20230220
  Receipt Date: 20230220
  Transmission Date: 20230417
  Serious: Yes (Other)
  Sender: FDA-Public Use
  Company Number: TR-SUN PHARMACEUTICAL INDUSTRIES LTD-2023R1-379556

PATIENT
  Age: 17 Month
  Sex: Male
  Weight: 10.6 kg

DRUGS (3)
  1. CALCITRIOL [Suspect]
     Active Substance: CALCITRIOL
     Indication: Hypocalcaemia
     Dosage: 0.5 MICROGRAM, BID
     Route: 065
  2. CALCITRIOL [Suspect]
     Active Substance: CALCITRIOL
     Dosage: 5 MICROGRAM, TID
     Route: 065
  3. CALCITRIOL [Suspect]
     Active Substance: CALCITRIOL
     Dosage: 16.5 MICROGRAM, DAILY
     Route: 065

REACTIONS (1)
  - Rickets [Recovered/Resolved]
